FAERS Safety Report 6061834-3 (Version None)
Quarter: 2009Q1

REPORT INFORMATION
  Report Type: 
  Country: None (occurrence: None)
  Receive Date: 20090202
  Receipt Date: 20090127
  Transmission Date: 20090719
  Serious: Yes (Hospitalization)
  Sender: FDA-Public Use
  Company Number: FR-ASTRAZENECA-2008CG01450

PATIENT
  Age: 750 Month
  Sex: Male

DRUGS (8)
  1. OMEPRAZOLE [Suspect]
     Route: 048
     Dates: end: 20080910
  2. OMEPRAZOLE [Suspect]
     Route: 048
     Dates: end: 20090108
  3. SIMVASTATIN [Suspect]
     Route: 048
     Dates: end: 20080910
  4. BI-TILDIEM L.P. [Suspect]
     Indication: HYPERTENSION
     Route: 048
     Dates: end: 20090108
  5. METFORMINE MERCK [Concomitant]
     Route: 048
     Dates: start: 20080701, end: 20080721
  6. DIAMICRON [Concomitant]
     Route: 048
     Dates: end: 20081001
  7. KARDEGIC [Concomitant]
  8. HEMI-DAONIL [Concomitant]

REACTIONS (4)
  - BLOOD ALKALINE PHOSPHATASE INCREASED [None]
  - DERMATITIS EXFOLIATIVE [None]
  - GAMMA-GLUTAMYLTRANSFERASE INCREASED [None]
  - TRANSAMINASES INCREASED [None]
